FAERS Safety Report 8400516-7 (Version None)
Quarter: 2012Q2

REPORT INFORMATION
  Report Type: 
  Country: None (occurrence: None)
  Receive Date: 20120531
  Receipt Date: 20120530
  Transmission Date: 20120825
  Serious: Yes (Other)
  Sender: FDA-Public Use
  Company Number: GB-GILEAD-2012-0055866

PATIENT
  Age: 35 Year
  Sex: Male

DRUGS (3)
  1. DIDANOSINE [Concomitant]
     Indication: HIV INFECTION
     Dosage: 250 MG, QD
     Dates: start: 20080101
  2. VIREAD [Suspect]
     Indication: HIV INFECTION
     Dosage: 300 MG, QD
     Dates: start: 20080101
  3. LOPINAVIR/RITONAVIR [Concomitant]
     Indication: HIV INFECTION
     Dosage: UNK
     Dates: start: 20080101

REACTIONS (1)
  - BONE MARROW OEDEMA SYNDROME [None]
